FAERS Safety Report 22651674 (Version 1)
Quarter: 2023Q2

REPORT INFORMATION
  Report Type: Spontaneous
  Country: US (occurrence: US)
  Receive Date: 20230628
  Receipt Date: 20230628
  Transmission Date: 20230722
  Serious: No
  Sender: FDA-Public Use
  Company Number: US-CTI BIOPHARMA-2023US03528

PATIENT

DRUGS (4)
  1. VONJO [Suspect]
     Active Substance: PACRITINIB
     Indication: Myelofibrosis
     Dosage: 200 MG, BID
     Route: 048
     Dates: start: 20230314
  2. VONJO [Suspect]
     Active Substance: PACRITINIB
     Indication: Marrow hyperplasia
  3. JAKAFI [Suspect]
     Active Substance: RUXOLITINIB
     Indication: Myelofibrosis
  4. JAKAFI [Suspect]
     Active Substance: RUXOLITINIB
     Indication: Marrow hyperplasia

REACTIONS (2)
  - Dysphonia [Unknown]
  - Aphonia [Unknown]
